FAERS Safety Report 16952111 (Version 1)
Quarter: 2019Q4

REPORT INFORMATION
  Report Type: Spontaneous
  Country: US (occurrence: US)
  Receive Date: 20191023
  Receipt Date: 20191023
  Transmission Date: 20200122
  Serious: No
  Sender: FDA-Public Use
  Company Number: US-ANTARES PHARMA, INC.-2019-SPO-XY-0021

PATIENT
  Sex: Male

DRUGS (1)
  1. XYOSTED [Suspect]
     Active Substance: TESTOSTERONE ENANTHATE
     Indication: HYPOGONADISM
     Dosage: 50 MG, WEEKLY
     Route: 058
     Dates: start: 20190718

REACTIONS (4)
  - Device difficult to use [Unknown]
  - Palpitations [Unknown]
  - Hot flush [Unknown]
  - Abdominal pain upper [Unknown]
